FAERS Safety Report 7399282-6 (Version None)
Quarter: 2011Q1

REPORT INFORMATION
  Report Type: 
  Country: None (occurrence: None)
  Receive Date: 20110301
  Receipt Date: 20100322
  Transmission Date: 20110831
  Serious: Yes (Hospitalization)
  Sender: FDA-Public Use
  Company Number: RB-16911-2009

PATIENT
  Age: 52 Year
  Sex: Male

DRUGS (5)
  1. SUBOXONE [Suspect]
     Indication: PAIN
     Dosage: (7 MG QD SUBLINGUAL), (2 MG QD SUBLINGUAL), (1 MG QD SUBLINGUAL), (0.5 MG QD SUBLINGUAL)
     Route: 060
     Dates: start: 20090603, end: 20090605
  2. SUBOXONE [Suspect]
     Indication: PAIN
     Dosage: (7 MG QD SUBLINGUAL), (2 MG QD SUBLINGUAL), (1 MG QD SUBLINGUAL), (0.5 MG QD SUBLINGUAL)
     Route: 060
     Dates: start: 20090531, end: 20090602
  3. SUBOXONE [Suspect]
     Indication: PAIN
     Dosage: (7 MG QD SUBLINGUAL), (2 MG QD SUBLINGUAL), (1 MG QD SUBLINGUAL), (0.5 MG QD SUBLINGUAL)
     Route: 060
     Dates: start: 20090101, end: 20090530
  4. SUBOXONE [Suspect]
     Indication: PAIN
     Dosage: (7 MG QD SUBLINGUAL), (2 MG QD SUBLINGUAL), (1 MG QD SUBLINGUAL), (0.5 MG QD SUBLINGUAL)
     Route: 060
     Dates: start: 20090606, end: 20090608
  5. SUBUTEX [Suspect]
     Indication: PAIN
     Dosage: (8 MG BID SUBLINGUAL)
     Route: 060
     Dates: start: 20090601

REACTIONS (5)
  - DRUG INEFFECTIVE FOR UNAPPROVED INDICATION [None]
  - DRUG WITHDRAWAL SYNDROME [None]
  - HEADACHE [None]
  - NAUSEA [None]
  - VOMITING [None]
